FAERS Safety Report 7746918-3 (Version None)
Quarter: 2011Q3

REPORT INFORMATION
  Report Type: 
  Country: None (occurrence: None)
  Receive Date: 20110913
  Receipt Date: 20110830
  Transmission Date: 20111222
  Serious: Yes (Hospitalization)
  Sender: FDA-Public Use
  Company Number: PHEH2011US02128

PATIENT
  Sex: Female

DRUGS (7)
  1. DIOVAN [Suspect]
     Indication: HYPERTENSION
     Dosage: 160 MG, QD
     Dates: start: 20110819
  2. CHOLESTEROL MEDICATION [Concomitant]
     Dosage: UNK UKN, UNK
  3. DIOVAN [Suspect]
     Dosage: UNK UKN, FOR NIGHT TIME
  4. DIOVAN HCT [Suspect]
     Indication: HYPERTENSION
     Dosage: (VALS 160 MG, HYDR 12.5 MG) 1 DF, QD
     Route: 048
  5. ANTITHYROID PREPARATIONS [Concomitant]
  6. DIOVAN HCT [Suspect]
     Dosage: (VALS 160 MG, HYDR 12.5 MG) 1 DF, DURING DAY
     Route: 048
  7. ASPIRIN [Concomitant]

REACTIONS (5)
  - ARTHRITIS [None]
  - MOVEMENT DISORDER [None]
  - POLLAKIURIA [None]
  - HEART RATE INCREASED [None]
  - HYPERTENSION [None]
